FAERS Safety Report 4865389-8 (Version None)
Quarter: 2005Q4

REPORT INFORMATION
  Report Type: 
  Country: None (occurrence: None)
  Receive Date: 20051219
  Receipt Date: 20051205
  Transmission Date: 20060501
  Serious: Yes (Other)
  Sender: FDA-Public Use
  Company Number: 220112

PATIENT
  Age: 51 Year
  Sex: Female

DRUGS (6)
  1. RITUXIMAB(RITUXIMAB) CONC FOR SOLUTION FOR INFUSION [Suspect]
     Indication: CHRONIC LYMPHOCYTIC LEUKAEMIA
     Dosage: 375 MG/M2,
  2. CLADRIBINE [Suspect]
     Indication: CHRONIC LYMPHOCYTIC LEUKAEMIA
     Dosage: 0.12 MG/KG, QD,
  3. CYCLOPHOSPAMIDE (CYCLOPHOSPHAMIDE) [Concomitant]
  4. VINCRISTINE [Concomitant]
  5. DOXORUBICIN HCL [Concomitant]
  6. PREDNISONE [Concomitant]

REACTIONS (3)
  - HEPATOSPLENOMEGALY [None]
  - LYMPHADENOPATHY [None]
  - NEUROENDOCRINE CARCINOMA OF THE SKIN [None]
